FAERS Safety Report 13239525 (Version 2)
Quarter: 2017Q1

REPORT INFORMATION
  Report Type: Spontaneous
  Country: US (occurrence: US)
  Receive Date: 20170216
  Receipt Date: 20170224
  Transmission Date: 20170428
  Serious: Yes (Death, Other)
  Sender: FDA-Public Use
  Company Number: PHHY2017US023395

PATIENT
  Age: 45 Year
  Sex: Female

DRUGS (4)
  1. DEXAMETHASONE. [Suspect]
     Active Substance: DEXAMETHASONE
     Indication: HISTIOCYTOSIS HAEMATOPHAGIC
     Dosage: UNK
     Route: 065
  2. CICLOSPORIN [Suspect]
     Active Substance: CYCLOSPORINE
     Indication: HISTIOCYTOSIS HAEMATOPHAGIC
     Dosage: UNK
     Route: 065
  3. ETOPOSIDE. [Suspect]
     Active Substance: ETOPOSIDE
     Indication: HISTIOCYTOSIS HAEMATOPHAGIC
     Dosage: UNK
     Route: 065
  4. METHOTREXATE. [Suspect]
     Active Substance: METHOTREXATE
     Indication: HISTIOCYTOSIS HAEMATOPHAGIC
     Route: 037

REACTIONS (4)
  - Product use issue [Unknown]
  - Disease recurrence [Unknown]
  - Multiple organ dysfunction syndrome [Fatal]
  - Histiocytosis haematophagic [Unknown]
